FAERS Safety Report 6184887-0 (Version None)
Quarter: 2009Q2

REPORT INFORMATION
  Report Type: 
  Country: None (occurrence: None)
  Receive Date: 20090509
  Receipt Date: 20090429
  Transmission Date: 20091009
  Serious: Yes (Hospitalization)
  Sender: FDA-Public Use
  Company Number: ES-ELI_LILLY_AND_COMPANY-ES200904007147

PATIENT
  Age: 82 Year
  Sex: Female

DRUGS (3)
  1. FORTEO [Suspect]
     Indication: OSTEOPOROSIS
     Dosage: 20 UG, UNK
     Route: 058
     Dates: start: 20090101, end: 20090201
  2. REGULATEN [Concomitant]
     Indication: HYPERTENSION
  3. ADIRO [Concomitant]

REACTIONS (6)
  - NAUSEA [None]
  - PNEUMONIA [None]
  - PYREXIA [None]
  - RENAL DISORDER [None]
  - RESPIRATORY TRACT INFECTION [None]
  - VOMITING [None]
